FAERS Safety Report 23058924 (Version 2)
Quarter: 2023Q4

REPORT INFORMATION
  Report Type: Spontaneous
  Country: US (occurrence: US)
  Receive Date: 20231012
  Receipt Date: 20231204
  Transmission Date: 20240110
  Serious: No
  Sender: FDA-Public Use
  Company Number: US-PFIZER INC-PV202300168093

PATIENT
  Age: 71 Year
  Sex: Female
  Weight: 89.796 kg

DRUGS (1)
  1. IBRANCE [Suspect]
     Active Substance: PALBOCICLIB
     Indication: Bone cancer
     Dosage: 100 MG, 1X/DAY
     Dates: start: 202110

REACTIONS (2)
  - Memory impairment [Unknown]
  - Off label use [Unknown]
